FAERS Safety Report 13693567 (Version 5)
Quarter: 2018Q3

REPORT INFORMATION
  Report Type: Spontaneous
  Country: IT (occurrence: IT)
  Receive Date: 20170627
  Receipt Date: 20180913
  Transmission Date: 20181010
  Serious: Yes (Death, Other)
  Sender: FDA-Public Use
  Company Number: IT-SA-2017SA112858

PATIENT
  Age: 58 Year
  Sex: Male

DRUGS (4)
  1. DOCETAXEL. [Suspect]
     Active Substance: DOCETAXEL
     Dosage: 75 MG, QD
     Route: 042
  2. VARGATEF [Suspect]
     Active Substance: NINTEDANIB
     Indication: LUNG ADENOCARCINOMA
     Dosage: 400 MG,QD
     Route: 048
     Dates: start: 20170529, end: 20170601
  3. DISSENTEN [Concomitant]
     Active Substance: LOPERAMIDE HYDROCHLORIDE
     Dosage: 4 DF,UNK
     Route: 048
     Dates: start: 20170601, end: 20170601
  4. DOCETAXEL. [Suspect]
     Active Substance: DOCETAXEL
     Indication: LUNG ADENOCARCINOMA
     Dosage: 149 MG, QD
     Route: 042
     Dates: start: 20170526, end: 20170526

REACTIONS (6)
  - Urine output decreased [Fatal]
  - Neutropenia [Fatal]
  - Sepsis [Unknown]
  - Death [Fatal]
  - Pain [Fatal]
  - Diarrhoea [Fatal]

NARRATIVE: CASE EVENT DATE: 20170601
